FAERS Safety Report 6536624-5 (Version None)
Quarter: 2010Q1

REPORT INFORMATION
  Report Type: 
  Country: None (occurrence: None)
  Receive Date: 20100113
  Receipt Date: 20100103
  Transmission Date: 20100710
  Serious: Yes (Other)
  Sender: FDA-Public Use
  Company Number: US-PFIZER INC-2009316213

PATIENT
  Sex: Male
  Weight: 92.97 kg

DRUGS (7)
  1. CHANTIX [Suspect]
     Indication: SMOKING CESSATION THERAPY
     Dosage: 0.5 MG, 1X/DAY
     Route: 048
     Dates: start: 20091221, end: 20100105
  2. OXYCODONE [Concomitant]
     Indication: SPINAL FRACTURE
     Dosage: UNK MG, UNK
     Dates: start: 20010101
  3. OXYCODONE [Concomitant]
     Indication: BACK PAIN
  4. XANAX [Concomitant]
     Indication: POST-TRAUMATIC STRESS DISORDER
     Dosage: 0.5 MG, 3X/DAY
  5. VALIUM [Concomitant]
     Indication: POST-TRAUMATIC STRESS DISORDER
     Dosage: 2 MG, 3X/DAY
  6. VALIUM [Concomitant]
     Dosage: FREQUENCY: 3X/DAY,
  7. PERCOCET [Concomitant]
     Indication: BACK PAIN
     Dosage: FREQUENCY: 6X/DAY,
     Dates: start: 20010101

REACTIONS (3)
  - AGITATION [None]
  - HOSTILITY [None]
  - POST-TRAUMATIC STRESS DISORDER [None]
